FAERS Safety Report 4680601-6 (Version None)
Quarter: 2005Q2

REPORT INFORMATION
  Report Type: 
  Country: None (occurrence: None)
  Receive Date: 20050531
  Receipt Date: 20041209
  Transmission Date: 20051028
  Serious: Yes (Hospitalization)
  Sender: FDA-Public Use
  Company Number: 2004112730

PATIENT
  Age: 77 Year
  Sex: Female

DRUGS (1)
  1. SOLU-MEDROL [Suspect]
     Indication: DIVERTICULITIS
     Dosage: UNKNOWN
     Route: 065

REACTIONS (1)
  - INTESTINAL PERFORATION [None]
